FAERS Safety Report 15365959 (Version 1)
Quarter: 2018Q3

REPORT INFORMATION
  Report Type: Spontaneous
  Country: FR (occurrence: FR)
  Receive Date: 20180910
  Receipt Date: 20180910
  Transmission Date: 20181010
  Serious: Yes (Hospitalization, Congenital Anomaly)
  Sender: FDA-Public Use
  Company Number: FR-ROCHE-2178355

PATIENT
  Age: 0 Day
  Sex: Female
  Weight: 2.15 kg

DRUGS (6)
  1. HERCEPTIN [Suspect]
     Active Substance: TRASTUZUMAB
     Indication: PRODUCT USED FOR UNKNOWN INDICATION
     Dosage: DOSE STRENGTH: 600 MG/5 ML, START DATE: 19/AUG/2017, STOP DATE: 27/OCT/2017, DOSE: 600 MG, DOSAGE FO
     Route: 064
  2. ENDOXAN [Suspect]
     Active Substance: CYCLOPHOSPHAMIDE
     Indication: PRODUCT USED FOR UNKNOWN INDICATION
     Dosage: DOSE: 900 MG
     Route: 064
  3. LEVEMIR [Concomitant]
     Active Substance: INSULIN DETEMIR
     Indication: PRODUCT USED FOR UNKNOWN INDICATION
     Dosage: START DATE: 19/AUG/2017, STOP DATE: 11/APR/2018
     Route: 064
  4. FLUOROURACILE ACCORD [Concomitant]
     Active Substance: FLUOROURACIL
     Indication: PRODUCT USED FOR UNKNOWN INDICATION
     Dosage: DOSE: 900 MG
     Route: 064
  5. EPIRUBICINE [Suspect]
     Active Substance: EPIRUBICIN
     Indication: PRODUCT USED FOR UNKNOWN INDICATION
     Dosage: DOSE: 180 MG
     Route: 064
  6. PACLITAXEL ACCORD [Suspect]
     Active Substance: PACLITAXEL
     Indication: PRODUCT USED FOR UNKNOWN INDICATION
     Dosage: DOSE: 144 MG
     Route: 064

REACTIONS (6)
  - Familial tremor [Recovered/Resolved]
  - Neonatal anoxia [Not Recovered/Not Resolved]
  - Foetal exposure during pregnancy [Unknown]
  - Agitation neonatal [Recovered/Resolved]
  - Premature baby [Unknown]
  - Congenital anomaly [Recovered/Resolved]

NARRATIVE: CASE EVENT DATE: 20180411
